FAERS Safety Report 7745671-7 (Version None)
Quarter: 2011Q3

REPORT INFORMATION
  Report Type: 
  Country: None (occurrence: None)
  Receive Date: 20110829
  Receipt Date: 20110817
  Transmission Date: 20111222
  Serious: Yes (Other)
  Sender: FDA-Public Use
  Company Number: 2011SP039299

PATIENT
  Age: 64 Year
  Sex: Male

DRUGS (7)
  1. PEG-INTRON [Suspect]
     Indication: HEPATITIS C
     Dosage: SC
     Route: 058
     Dates: start: 20050401
  2. PEGASYS [Suspect]
     Indication: HEPATITIS C
     Dosage: SC
     Route: 058
     Dates: start: 20070901
  3. INTRON A [Suspect]
     Indication: HEPATITIS C
     Dosage: IM
     Route: 030
     Dates: start: 20021001
  4. TACROLIMUS [Concomitant]
  5. REBETOL [Suspect]
     Indication: HEPATITIS C
     Dosage: PO
     Route: 048
     Dates: start: 20050401
  6. REBETOL [Suspect]
     Indication: HEPATITIS C
     Dosage: PO
     Route: 048
     Dates: start: 20021001
  7. STEROID [Concomitant]

REACTIONS (7)
  - DRY MOUTH [None]
  - SIALOADENITIS [None]
  - SJOGREN'S SYNDROME [None]
  - DRUG INEFFECTIVE [None]
  - PYRAMIDAL TRACT SYNDROME [None]
  - MYELOPATHY [None]
  - NEUROGENIC BLADDER [None]
